FAERS Safety Report 9731190 (Version 3)
Quarter: 2014Q1

REPORT INFORMATION
  Report Type: Report from Study
  Country: US (occurrence: US)
  Receive Date: 20131205
  Receipt Date: 20140128
  Transmission Date: 20141002
  Serious: Yes (Hospitalization)
  Sender: FDA-Public Use
  Company Number: US-BRISTOL-MYERS SQUIBB COMPANY-19156470

PATIENT
  Age: 72 Year
  Sex: Female

DRUGS (22)
  1. CARBOPLATIN [Suspect]
     Indication: NON-SMALL CELL LUNG CANCER
     Dosage: DATE OF MOST RECENT DOSE PRIOR TO SAE: 06/JUL/2013
     Route: 042
     Dates: start: 20130610, end: 201307
  2. PACLITAXEL [Suspect]
     Indication: NON-SMALL CELL LUNG CANCER
     Dosage: DATE OF MOST RECENT DOSE PRIOR TO SAE: 06/JUL/2013
     Route: 042
     Dates: start: 20130610
  3. BEVACIZUMAB [Suspect]
     Indication: NON-SMALL CELL LUNG CANCER
     Dosage: DATE OF MOST RECENT DOSE PRIOR TO SAE: 06/JUL/2013
     Route: 042
     Dates: start: 20130610
  4. SPIRIVA [Concomitant]
     Indication: COUGH
     Route: 055
     Dates: start: 20130613
  5. BENZONATATE [Concomitant]
     Indication: COUGH
     Route: 048
     Dates: start: 20130514
  6. LORAZEPAM [Concomitant]
     Indication: NAUSEA
     Route: 048
     Dates: start: 20130610
  7. LORAZEPAM [Concomitant]
     Indication: INSOMNIA
     Route: 048
     Dates: start: 20130610
  8. ZOFRAN [Concomitant]
     Indication: VOMITING
     Dosage: ALSO 4MG PRN:IV
     Route: 048
     Dates: start: 20130606
  9. COMPAZINE [Concomitant]
     Indication: VOMITING
     Route: 048
     Dates: start: 20130610
  10. FLUTICASONE [Concomitant]
     Indication: HYPERSENSITIVITY
     Route: 055
     Dates: start: 20130415
  11. ATENOLOL [Concomitant]
     Indication: HYPERTENSION
     Route: 048
     Dates: start: 20040707
  12. AMLODIPINE [Concomitant]
     Indication: HYPERTENSION
     Route: 048
     Dates: start: 20120315
  13. PRAVACHOL [Concomitant]
     Indication: HYPERLIPIDAEMIA
     Route: 048
     Dates: start: 20120315
  14. DULERA [Concomitant]
     Dosage: 2DF=100-5MICROGRAM
     Route: 055
  15. PROTONIX [Concomitant]
     Route: 042
  16. SODIUM CHLORIDE [Concomitant]
  17. PARACETAMOL TABS [Concomitant]
     Dosage: ALSO IV 713MG
     Route: 048
  18. TUMS [Concomitant]
     Route: 048
  19. MORPHINE [Concomitant]
     Route: 042
  20. ATROVENT [Concomitant]
     Indication: COUGH
     Route: 055
     Dates: start: 20130614
  21. TYLENOL [Concomitant]
     Indication: BONE PAIN
     Route: 048
     Dates: start: 1990
  22. TYLENOL [Concomitant]
     Indication: SCIATICA
     Route: 048
     Dates: start: 1990

REACTIONS (1)
  - Pleural effusion [Recovered/Resolved]
